FAERS Safety Report 6536729-9 (Version None)
Quarter: 2010Q1

REPORT INFORMATION
  Report Type: 
  Country: None (occurrence: None)
  Receive Date: 20100105
  Receipt Date: 20091225
  Transmission Date: 20100710
  Serious: Yes (Hospitalization, Disabling)
  Sender: FDA-Public Use
  Company Number: WAES 0909USA02859

PATIENT
  Age: 60 Year
  Sex: Female

DRUGS (16)
  1. ZETIA [Suspect]
     Indication: HYPERTRIGLYCERIDAEMIA
     Dosage: 10 MG/DAILY PO
     Route: 048
     Dates: start: 20080519
  2. ZETIA [Suspect]
     Indication: HYPO HDL CHOLESTEROLAEMIA
     Dosage: 10 MG/DAILY PO
     Route: 048
     Dates: start: 20080519
  3. AMLODIPINE BESYLATE [Concomitant]
  4. ASCORBIC ACID [Concomitant]
  5. CALCIUM CARBONATE [Concomitant]
  6. DARBEPOETIN ALFA [Concomitant]
  7. DIPHENHYDRAMINE HCL [Concomitant]
  8. DROXIDOPA [Concomitant]
  9. FLUVASTATIN SODIUM [Concomitant]
  10. GLYBURIDE [Concomitant]
  11. HEPARIN SODIUM [Concomitant]
  12. LANSOPRAZOLE [Concomitant]
  13. SENNA [Concomitant]
  14. SENNOSIDES [Concomitant]
  15. TEMOCAPRIL HYDROCHLORIDE [Concomitant]
  16. VOGLIBOSE [Concomitant]

REACTIONS (6)
  - BLOOD GLUCOSE DECREASED [None]
  - FALL [None]
  - GAIT DISTURBANCE [None]
  - HYPERGLYCAEMIA [None]
  - ORTHOSTATIC HYPOTENSION [None]
  - TRAUMATIC FRACTURE [None]
